FAERS Safety Report 10993354 (Version 1)
Quarter: 2015Q2

REPORT INFORMATION
  Report Type: Report from Study
  Country: US (occurrence: US)
  Receive Date: 20150407
  Receipt Date: 20150407
  Transmission Date: 20150821
  Serious: Yes (Hospitalization)
  Sender: FDA-Public Use
  Company Number: US-AMGEN-USASL2015032194

PATIENT
  Age: 57 Year
  Sex: Male

DRUGS (1)
  1. BLINCYTO [Suspect]
     Active Substance: BLINATUMOMAB
     Indication: ACUTE LYMPHOCYTIC LEUKAEMIA
     Dosage: 9 MUG, UNK
     Route: 042
     Dates: start: 201501

REACTIONS (15)
  - Gingival blister [Not Recovered/Not Resolved]
  - Limb injury [Not Recovered/Not Resolved]
  - Blood glucose decreased [Recovering/Resolving]
  - Confusional state [Recovering/Resolving]
  - Asthenia [Recovering/Resolving]
  - Hearing impaired [Not Recovered/Not Resolved]
  - Swelling face [Not Recovered/Not Resolved]
  - Hypophagia [Recovering/Resolving]
  - Fall [Recovered/Resolved]
  - Ocular hyperaemia [Not Recovered/Not Resolved]
  - Laceration [Not Recovered/Not Resolved]
  - Nodule [Not Recovered/Not Resolved]
  - Gingival disorder [Not Recovered/Not Resolved]
  - Gingival pain [Not Recovered/Not Resolved]
  - Oral mucosal blistering [Not Recovered/Not Resolved]

NARRATIVE: CASE EVENT DATE: 2015
